FAERS Safety Report 8870125 (Version 1)
Quarter: 2012Q4

REPORT INFORMATION
  Report Type: 
  Country: GB (occurrence: GB)
  Receive Date: 20121028
  Receipt Date: 20121028
  Transmission Date: 20130627
  Serious: Yes (Death, Hospitalization)
  Sender: FDA-Public Use
  Company Number: GB-MYLANLABS-2012S1021558

PATIENT
  Age: 87 Year
  Sex: Female
  Weight: 58.1 kg

DRUGS (14)
  1. INDAPAMIDE [Suspect]
     Indication: HYPERTENSION
     Route: 048
     Dates: start: 20120702, end: 20120719
  2. AMIAS [Concomitant]
     Indication: PRODUCT USED FOR UNKNOWN INDICATION
     Route: 048
  3. ASPIRIN [Concomitant]
     Indication: PRODUCT USED FOR UNKNOWN INDICATION
  4. ATENOLOL [Concomitant]
     Indication: HYPERTENSION
     Route: 048
     Dates: end: 20120701
  5. BENDROFLUMETHIAZIDE [Concomitant]
     Indication: HYPERTENSION
     Route: 048
     Dates: end: 20120701
  6. EVOREL CONTI [Concomitant]
     Indication: HORMONE REPLACEMENT THERAPY
  7. HYDROCORTISONE [Concomitant]
     Indication: HYPOPITUITARISM
  8. HYDROCORTISONE [Concomitant]
     Indication: HYPOPITUITARISM
  9. LEVOTHYROXINE [Concomitant]
     Indication: HYPOPITUITARISM
  10. NATECAL D3 [Concomitant]
     Indication: OSTEOPOROSIS
     Dates: start: 2012
  11. PARACETAMOL [Concomitant]
     Indication: PAIN
  12. PROTELOS [Concomitant]
     Indication: OSTEOPOROSIS
     Dates: start: 2012
  13. SIMVASTATIN [Concomitant]
     Indication: PRODUCT USED FOR UNKNOWN INDICATION
     Route: 048
  14. BENDROFLUMETHAZIDE [Concomitant]
     Indication: OEDEMA
     Route: 048
     Dates: end: 20120701

REACTIONS (4)
  - Gastric ulcer haemorrhage [Fatal]
  - Stevens-Johnson syndrome [Not Recovered/Not Resolved]
  - Decreased appetite [Not Recovered/Not Resolved]
  - Hypokalaemia [Not Recovered/Not Resolved]
